FAERS Safety Report 5198873-0 (Version None)
Quarter: 2006Q4

REPORT INFORMATION
  Report Type: 
  Country: None (occurrence: None)
  Receive Date: 20060925
  Receipt Date: 20050824
  Transmission Date: 20070319
  Serious: Yes (Hospitalization)
  Sender: FDA-Public Use
  Company Number: US-JNJFOC-20050805889

PATIENT
  Age: 33 Year
  Sex: Female

DRUGS (5)
  1. CONCERTA [Suspect]
     Indication: ATTENTION DEFICIT/HYPERACTIVITY DISORDER
     Dosage: 36 MG, IN 1 DAY, ORAL
     Route: 048
     Dates: start: 20050201, end: 20050714
  2. MAXAIR [Concomitant]
  3. ASTELIN [Concomitant]
  4. AFRIN (AFRIN / OLD FORM/) [Concomitant]
  5. SUDAFED 12 HOUR [Concomitant]

REACTIONS (2)
  - AGITATION [None]
  - CONVULSION [None]
